FAERS Safety Report 10973184 (Version 3)
Quarter: 2015Q2

REPORT INFORMATION
  Report Type: Spontaneous
  Country: NO (occurrence: NO)
  Receive Date: 20150401
  Receipt Date: 20150610
  Transmission Date: 20150821
  Serious: Yes (Disabling)
  Sender: FDA-Public Use
  Company Number: NO-ROCHE-1557863

PATIENT
  Age: 17 Year
  Sex: Female

DRUGS (28)
  1. MABTHERA [Suspect]
     Active Substance: RITUXIMAB
     Indication: HAEMOLYTIC ANAEMIA
     Route: 042
     Dates: start: 20110725
  2. LAMICTAL [Concomitant]
     Active Substance: LAMOTRIGINE
  3. DIFLUCAN [Concomitant]
     Active Substance: FLUCONAZOLE
  4. PARACET (NORWAY) [Concomitant]
  5. SANDIMMUNE [Concomitant]
     Active Substance: CYCLOSPORINE
     Route: 065
     Dates: start: 20110802, end: 20120103
  6. EPINAT [Concomitant]
  7. POLARAMIN [Concomitant]
     Active Substance: DEXCHLORPHENIRAMINE MALEATE
  8. ESOPRAL [Concomitant]
     Active Substance: ESOMEPRAZOLE MAGNESIUM
  9. ATGAM [Suspect]
     Active Substance: EQUINE THYMOCYTE IMMUNE GLOBULIN
     Indication: HAEMOLYTIC ANAEMIA
     Route: 065
     Dates: start: 20110729, end: 20110801
  10. KEPPRA [Concomitant]
     Active Substance: LEVETIRACETAM
  11. TRIOBE [Concomitant]
  12. AZITHROMYCIN [Concomitant]
     Active Substance: AZITHROMYCIN ANHYDROUS
  13. KALEORID [Concomitant]
     Active Substance: POTASSIUM CHLORIDE
  14. RIVOTRIL [Concomitant]
     Active Substance: CLONAZEPAM
  15. MABTHERA [Suspect]
     Active Substance: RITUXIMAB
     Indication: APLASTIC ANAEMIA
  16. CIPROXIN [Concomitant]
     Active Substance: CIPROFLOXACIN
  17. PARALGIN FORTE (CODEINE PHOSPHATE/PARACETAMOL) [Concomitant]
  18. HALDOL [Concomitant]
     Active Substance: HALOPERIDOL
  19. ATGAM [Suspect]
     Active Substance: EQUINE THYMOCYTE IMMUNE GLOBULIN
     Indication: APLASTIC ANAEMIA
  20. CEFTRIAXONE. [Concomitant]
     Active Substance: CEFTRIAXONE
  21. NEXIUM [Concomitant]
     Active Substance: ESOMEPRAZOLE MAGNESIUM
  22. AMPHOTERICIN [Concomitant]
     Active Substance: AMPHOTERICIN B
  23. IMOVANE [Concomitant]
     Active Substance: ZOPICLONE
  24. CALCIGRAN FORTE [Concomitant]
  25. STESOLID [Concomitant]
     Active Substance: DIAZEPAM
  26. PREDNISOLON [Concomitant]
     Active Substance: PREDNISOLONE
     Route: 065
     Dates: start: 20110802, end: 20120103
  27. ACICLOVIR [Concomitant]
     Active Substance: ACYCLOVIR
  28. MERONEM [Concomitant]
     Active Substance: MEROPENEM

REACTIONS (3)
  - Visual field defect [Unknown]
  - Epilepsy [Not Recovered/Not Resolved]
  - Off label use [Unknown]

NARRATIVE: CASE EVENT DATE: 20120304
